FAERS Safety Report 25052662 (Version 2)
Quarter: 2025Q2

REPORT INFORMATION
  Report Type: Spontaneous
  Country: US (occurrence: US)
  Receive Date: 20250307
  Receipt Date: 20250506
  Transmission Date: 20250716
  Serious: No
  Sender: DAIICHI
  Company Number: US-DAIICHI SANKYO, INC.-DS-2025-129175-USAA

PATIENT
  Sex: Female

DRUGS (2)
  1. VANFLYTA [Suspect]
     Active Substance: QUIZARTINIB DIHYDROCHLORIDE
     Indication: Acute myeloid leukaemia (in remission)
     Dosage: 3 DOSAGE FORM, QD (17.7 MG, TAKE 3 TABLETS ONCE DAILY)
     Route: 048
     Dates: start: 20250214
  2. VANFLYTA [Suspect]
     Active Substance: QUIZARTINIB DIHYDROCHLORIDE
     Dosage: 1 DOSAGE FORM, QD
     Route: 048

REACTIONS (3)
  - Off label use [Unknown]
  - Therapy change [Not Recovered/Not Resolved]
  - No adverse event [Unknown]
